FAERS Safety Report 5430070-3 (Version None)
Quarter: 2007Q3

REPORT INFORMATION
  Report Type: 
  Country: None (occurrence: None)
  Receive Date: 20070829
  Receipt Date: 20070820
  Transmission Date: 20080115
  Serious: Yes (Death, Congenital Anomaly, Other)
  Sender: FDA-Public Use
  Company Number: US-PFIZER INC-2007069586

PATIENT

DRUGS (1)
  1. ZOLOFT [Suspect]

REACTIONS (2)
  - CONGENITAL TRICUSPID VALVE ATRESIA [None]
  - DRUG EXPOSURE DURING PREGNANCY [None]
